FAERS Safety Report 4853614-9 (Version None)
Quarter: 2005Q4

REPORT INFORMATION
  Report Type: 
  Country: None (occurrence: None)
  Receive Date: 20051212
  Receipt Date: 20051122
  Transmission Date: 20060501
  Serious: Yes (Hospitalization)
  Sender: FDA-Public Use
  Company Number: FR200511002421

PATIENT
  Age: 70 Year
  Sex: Male
  Weight: 61 kg

DRUGS (6)
  1. HUMAN INSULIN (RDNA ORIGIN) (HUMAN INSULIN (RDNA ORIGIN)) [Suspect]
     Dosage: SUBCUTANEOUS
     Route: 058
  2. BACTRIM [Concomitant]
  3. CALCIPARINE [Concomitant]
  4. TIENAM (CILASTATIN, CILASTATIN SODIUM, IMIPENEM) [Concomitant]
  5. MIDAZOLAM HCL [Concomitant]
  6. FENTANYL CITRATE [Concomitant]

REACTIONS (1)
  - PANCYTOPENIA [None]
